FAERS Safety Report 16924398 (Version 1)
Quarter: 2019Q4

REPORT INFORMATION
  Report Type: Other
  Country: CA (occurrence: CA)
  Receive Date: 20191016
  Receipt Date: 20191016
  Transmission Date: 20200122
  Serious: Yes (Other)
  Sender: FDA-Public Use
  Company Number: CA-PFIZER INC-2019442894

PATIENT
  Age: 53 Year
  Sex: Female

DRUGS (16)
  1. TELMISARTAN. [Concomitant]
     Active Substance: TELMISARTAN
     Dosage: UNK
     Route: 065
  2. ATORVASTATIN CALCIUM. [Suspect]
     Active Substance: ATORVASTATIN CALCIUM
     Indication: BLOOD CHOLESTEROL INCREASED
     Dosage: 40 MG, 1X/DAY
     Route: 065
  3. AMLODIPINE [Concomitant]
     Active Substance: AMLODIPINE BESYLATE
     Dosage: UNK
  4. TELMISARTAN. [Concomitant]
     Active Substance: TELMISARTAN
     Dosage: UNK
  5. ATORVASTATIN CALCIUM. [Suspect]
     Active Substance: ATORVASTATIN CALCIUM
     Dosage: UNK
     Route: 065
  6. LINAGLIPTIN [Concomitant]
     Active Substance: LINAGLIPTIN
     Dosage: UNK
     Route: 065
  7. AMLODIPINE [Concomitant]
     Active Substance: AMLODIPINE BESYLATE
     Dosage: UNK
     Route: 065
  8. METFORMIN [Concomitant]
     Active Substance: METFORMIN HYDROCHLORIDE
     Dosage: UNK
  9. LINAGLIPTIN [Concomitant]
     Active Substance: LINAGLIPTIN
     Dosage: UNK
     Route: 065
  10. AMLODIPINE [Concomitant]
     Active Substance: AMLODIPINE BESYLATE
     Dosage: UNK
     Route: 065
  11. TELMISARTAN. [Concomitant]
     Active Substance: TELMISARTAN
     Dosage: UNK
     Route: 065
  12. ROSUVASTATIN. [Suspect]
     Active Substance: ROSUVASTATIN
     Indication: ISCHAEMIC HEART DISEASE PROPHYLAXIS
     Dosage: 40 MG, 1X/DAY
     Route: 065
  13. ROSUVASTATIN. [Suspect]
     Active Substance: ROSUVASTATIN
     Dosage: UNK
     Route: 065
  14. METFORMIN [Concomitant]
     Active Substance: METFORMIN HYDROCHLORIDE
     Dosage: UNK
     Route: 065
  15. METFORMIN [Concomitant]
     Active Substance: METFORMIN HYDROCHLORIDE
     Dosage: UNK
     Route: 065
  16. TRAJENTA [Concomitant]
     Active Substance: LINAGLIPTIN
     Dosage: UNK

REACTIONS (7)
  - Haematuria [Recovered/Resolved]
  - Myalgia [Recovered/Resolved]
  - Acute kidney injury [Recovered/Resolved]
  - Proteinuria [Recovered/Resolved]
  - Albuminuria [Recovered/Resolved]
  - Nephropathy toxic [Recovered/Resolved]
  - Blood creatinine increased [Recovered/Resolved]
